FAERS Safety Report 10471251 (Version 2)
Quarter: 2014Q3

REPORT INFORMATION
  Report Type: Spontaneous
  Country: BR (occurrence: BR)
  Receive Date: 20140923
  Receipt Date: 20140923
  Transmission Date: 20150326
  Serious: Yes (Hospitalization)
  Sender: FDA-Public Use
  Company Number: BR-PFIZER INC-2014160884

PATIENT
  Age: 59 Year
  Sex: Female

DRUGS (9)
  1. FRONTAL [Suspect]
     Active Substance: ALPRAZOLAM
     Indication: IRRITABILITY
     Dosage: 0.5 MG, DAILY
     Route: 048
     Dates: start: 2007, end: 201406
  2. FRONTAL XR [Suspect]
     Active Substance: ALPRAZOLAM
     Indication: DEPRESSION
  3. FRONTAL XR [Suspect]
     Active Substance: ALPRAZOLAM
     Indication: IRRITABILITY
     Dosage: 1 MG, DAILY
     Route: 048
     Dates: start: 201406
  4. FRONTAL XR [Suspect]
     Active Substance: ALPRAZOLAM
     Indication: ANXIETY
  5. FRONTAL XR [Suspect]
     Active Substance: ALPRAZOLAM
     Indication: PANIC DISORDER
  6. FRONTAL [Suspect]
     Active Substance: ALPRAZOLAM
     Indication: DEPRESSION
  7. RIVOTRIL [Concomitant]
     Active Substance: CLONAZEPAM
     Dosage: UNK
     Dates: start: 2007
  8. FRONTAL [Suspect]
     Active Substance: ALPRAZOLAM
     Indication: ANXIETY
  9. FRONTAL [Suspect]
     Active Substance: ALPRAZOLAM
     Indication: PANIC DISORDER

REACTIONS (6)
  - Arrhythmia [Unknown]
  - Agitation [Unknown]
  - Sluggishness [Unknown]
  - Nervousness [Unknown]
  - Drug effect delayed [Unknown]
  - Drug ineffective [Unknown]

NARRATIVE: CASE EVENT DATE: 2014
